FAERS Safety Report 18855886 (Version 2)
Quarter: 2021Q1

REPORT INFORMATION
  Report Type: Spontaneous
  Country: US (occurrence: US)
  Receive Date: 20210206
  Receipt Date: 20210208
  Transmission Date: 20210420
  Serious: Yes (Other)
  Sender: FDA-Public Use
  Company Number: US-TEVA-2021-US-1874918

PATIENT
  Age: 69 Year
  Sex: Female

DRUGS (2)
  1. GABITRIL [Suspect]
     Active Substance: TIAGABINE HYDROCHLORIDE
     Route: 065
  2. GABITRIL [Suspect]
     Active Substance: TIAGABINE HYDROCHLORIDE
     Indication: PARTIAL SEIZURES
     Dosage: 1 TABLET IN THE MORNING, 1 TABLET AT NOON, AND 1 TABLET AT NIGHT DAILY 30 YEARS AGO
     Route: 065

REACTIONS (12)
  - Fatigue [Unknown]
  - Hypothyroidism [Unknown]
  - Abdominal discomfort [Unknown]
  - Memory impairment [Unknown]
  - Dyspepsia [Unknown]
  - Vision blurred [Unknown]
  - Headache [Not Recovered/Not Resolved]
  - Dizziness [Unknown]
  - Feeling abnormal [Unknown]
  - Drug level decreased [Unknown]
  - Dysphonia [Unknown]
  - Crying [Unknown]
